FAERS Safety Report 9838644 (Version 6)
Quarter: 2016Q2

REPORT INFORMATION
  Report Type: Spontaneous
  Country: US (occurrence: US)
  Receive Date: 20140123
  Receipt Date: 20160627
  Transmission Date: 20160815
  Serious: Yes (Hospitalization, Other)
  Sender: FDA-Public Use
  Company Number: US-PFIZER INC-2014019981

PATIENT
  Age: 75 Year
  Sex: Male

DRUGS (6)
  1. LYRICA [Suspect]
     Active Substance: PREGABALIN
     Dosage: 50 MG, 3X/DAY
     Route: 048
     Dates: start: 2013
  2. INSULIN [Concomitant]
     Active Substance: INSULIN NOS
     Dosage: UNK
  3. LYRICA [Suspect]
     Active Substance: PREGABALIN
     Dosage: 25 MG, 2X/DAY
     Dates: start: 2013
  4. LYRICA [Suspect]
     Active Substance: PREGABALIN
     Indication: DIABETIC NEUROPATHY
     Dosage: UNK
     Dates: start: 2011
  5. LYRICA [Suspect]
     Active Substance: PREGABALIN
     Dosage: UNK
     Dates: end: 201312
  6. LYRICA [Suspect]
     Active Substance: PREGABALIN
     Dosage: UNK
     Dates: end: 20140211

REACTIONS (17)
  - Pain in extremity [Unknown]
  - Drug hypersensitivity [Unknown]
  - Cardiac murmur [Unknown]
  - Impaired work ability [Unknown]
  - Paralysis [Recovered/Resolved]
  - Cystitis [Unknown]
  - Urine odour abnormal [Unknown]
  - Dysstasia [Unknown]
  - Myalgia [Recovered/Resolved]
  - Muscle spasms [Unknown]
  - Oxygen saturation decreased [Unknown]
  - Malaise [Unknown]
  - Pain in extremity [Recovered/Resolved]
  - Euphoric mood [Unknown]
  - Gait disturbance [Unknown]
  - Condition aggravated [Unknown]
  - Pain of skin [Unknown]
